FAERS Safety Report 19355409 (Version 1)
Quarter: 2021Q2

REPORT INFORMATION
  Report Type: Spontaneous
  Country: US (occurrence: US)
  Receive Date: 20210601
  Receipt Date: 20210601
  Transmission Date: 20210717
  Serious: Yes (Other)
  Sender: FDA-Public Use
  Company Number: None

PATIENT

DRUGS (1)
  1. SOFTSOAP ANTIBACTERIAL KITCHEN FRESH HANDS [Suspect]
     Active Substance: BENZALKONIUM CHLORIDE
     Indication: ANTIBIOTIC PROPHYLAXIS
     Dosage: ?          OTHER STRENGTH:OZ;QUANTITY:1 11.25 OZ BOTTLE;OTHER ROUTE:HAND WASH?
     Dates: start: 20210531, end: 20210531

REACTIONS (8)
  - Drug interaction [None]
  - Skin injury [None]
  - Product complaint [None]
  - Product odour abnormal [None]
  - Unevaluable event [None]
  - Erythema [None]
  - Product contamination microbial [None]
  - Staphylococcal infection [None]
